FAERS Safety Report 9069617 (Version 1)
Quarter: 2013Q1

REPORT INFORMATION
  Report Type: Other
  Country: US (occurrence: US)
  Receive Date: 20130215
  Receipt Date: 20130215
  Transmission Date: 20140127
  Serious: Yes (Hospitalization, Other)
  Sender: FDA-Public Use
  Company Number: US-ACTELION-A-CH2013-79238

PATIENT
  Age: 40 Year
  Sex: Female

DRUGS (3)
  1. TRACLEER [Suspect]
     Indication: PULMONARY ARTERIAL HYPERTENSION
     Dosage: UNK
     Route: 048
  2. TREPROSTINIL [Concomitant]
     Route: 042
  3. SILDENAFIL [Concomitant]

REACTIONS (7)
  - Pulmonary arterial hypertension [Unknown]
  - Disease progression [Unknown]
  - Lung transplant [Unknown]
  - Graft dysfunction [Unknown]
  - Pulmonary embolism [Unknown]
  - Transplant rejection [Unknown]
  - Respiratory syncytial virus infection [Unknown]
